FAERS Safety Report 4632493-9 (Version None)
Quarter: 2005Q2

REPORT INFORMATION
  Report Type: 
  Country: None (occurrence: None)
  Receive Date: 20050411
  Receipt Date: 20050401
  Transmission Date: 20051028
  Serious: Yes (Other)
  Sender: FDA-Public Use
  Company Number: GB-ABBOTT-05P-167-0296107-00

PATIENT
  Sex: Male

DRUGS (3)
  1. EPILIM [Suspect]
     Indication: AFFECTIVE DISORDER
     Route: 065
  2. CLOBAZAM [Suspect]
     Indication: EPILEPSY
     Route: 065
  3. CLOBAZAM [Suspect]
     Route: 065

REACTIONS (3)
  - EPILEPSY [None]
  - MEMORY IMPAIRMENT [None]
  - UNEVALUABLE EVENT [None]
